FAERS Safety Report 18630238 (Version 1)
Quarter: 2020Q4

REPORT INFORMATION
  Report Type: Report from Study
  Country: US (occurrence: US)
  Receive Date: 20201217
  Receipt Date: 20201217
  Transmission Date: 20210114
  Serious: Yes (Other)
  Sender: FDA-Public Use
  Company Number: US-TAKEDA-2020TUS057690

PATIENT
  Age: 26 Year
  Sex: Female

DRUGS (1)
  1. VON WILLEBRAND FACTOR [Suspect]
     Active Substance: VON WILLEBRAND FACTOR HUMAN
     Indication: PROPHYLAXIS
     Route: 065

REACTIONS (2)
  - Off label use [Unknown]
  - Haemorrhage [Unknown]
